FAERS Safety Report 19254089 (Version 1)
Quarter: 2021Q2

REPORT INFORMATION
  Report Type: Spontaneous
  Country: LT (occurrence: LT)
  Receive Date: 20210513
  Receipt Date: 20210513
  Transmission Date: 20210717
  Serious: Yes (Hospitalization)
  Sender: FDA-Public Use
  Company Number: LT-ACCORD-224970

PATIENT
  Age: 43 Year
  Sex: Female

DRUGS (1)
  1. TRAZODONE [Suspect]
     Active Substance: TRAZODONE HYDROCHLORIDE
     Indication: SLEEP DISORDER
     Dosage: OVERDOSED TRAZODONE 150 MG TABLETS
     Route: 048
     Dates: start: 20210221, end: 20210221

REACTIONS (3)
  - Intentional overdose [Unknown]
  - Mallory-Weiss syndrome [Recovered/Resolved]
  - Suicide attempt [Unknown]

NARRATIVE: CASE EVENT DATE: 20210221
